FAERS Safety Report 9735015 (Version 1)
Quarter: 2013Q4

REPORT INFORMATION
  Report Type: Spontaneous
  Country: DE (occurrence: DE)
  Receive Date: 20131206
  Receipt Date: 20131206
  Transmission Date: 20140711
  Serious: Yes (Other)
  Sender: FDA-Public Use
  Company Number: DE-ELI_LILLY_AND_COMPANY-DE201311008352

PATIENT
  Age: 65 Year
  Sex: Female

DRUGS (3)
  1. LIPROLOG LISPRO [Suspect]
     Indication: TYPE 1 DIABETES MELLITUS
     Dosage: 15 IU, QD
     Route: 058
     Dates: start: 2010
  2. LANTUS [Suspect]
     Indication: TYPE 1 DIABETES MELLITUS
     Dosage: 12 IU, QD
     Route: 065
     Dates: start: 2010
  3. L-THYROXIN [Suspect]
     Indication: HYPOTHYROIDISM
     Dosage: 50 UG, QD
     Route: 065

REACTIONS (2)
  - Squamous cell carcinoma of the tongue [Not Recovered/Not Resolved]
  - Metastatic neoplasm [Not Recovered/Not Resolved]
